FAERS Safety Report 8340149-4 (Version None)
Quarter: 2012Q2

REPORT INFORMATION
  Report Type: 
  Country: None (occurrence: None)
  Receive Date: 20120507
  Receipt Date: 20120427
  Transmission Date: 20120825
  Serious: Yes (Hospitalization)
  Sender: FDA-Public Use
  Company Number: US-BAYER-2012-014316

PATIENT
  Age: 31 Year
  Sex: Female
  Weight: 95 kg

DRUGS (13)
  1. KLONOPIN [Concomitant]
     Dosage: 0.5 MG, PRN
     Route: 048
     Dates: start: 20080331
  2. WELLBUTRIN SR [Concomitant]
     Dosage: 100 MG, BID
     Route: 048
     Dates: start: 20080331
  3. YAZ [Suspect]
     Indication: CONTRACEPTION
     Dosage: UNK
     Dates: start: 20080315, end: 20080508
  4. ABILIFY [Concomitant]
     Dosage: 30 MG, QD
     Route: 048
     Dates: start: 20080331
  5. ALLEGRA [Concomitant]
     Dosage: 180 MG, QD, PRN
     Route: 048
     Dates: start: 20080331
  6. SEROQUEL [Concomitant]
     Dosage: 200 MG, HS
     Route: 048
     Dates: start: 20050331
  7. TEMAZEPAM [Concomitant]
     Dosage: 30 MG, HS
     Route: 048
     Dates: start: 20080331
  8. YASMIN [Suspect]
     Indication: CONTRACEPTION
     Dosage: UNK
     Dates: start: 20060419, end: 20060813
  9. RISPERDAL [Concomitant]
     Dosage: 50 MG, Q2WK
     Route: 030
     Dates: start: 20080331
  10. EFFEXOR XR [Concomitant]
     Dosage: 75 MG, BID
     Route: 048
     Dates: start: 20080331
  11. COGENTIN [Concomitant]
     Dosage: 1 MG, QD, PRN
     Route: 048
     Dates: start: 20080331
  12. FLONASE [Concomitant]
     Dosage: DAILY, AS NEEDED
     Route: 045
     Dates: start: 20080331
  13. CEPHALEXIN [Concomitant]
     Indication: CELLULITIS
     Dosage: UNK
     Dates: start: 20080512

REACTIONS (2)
  - THROMBOPHLEBITIS SUPERFICIAL [None]
  - PAIN [None]
